FAERS Safety Report 21918717 (Version 3)
Quarter: 2023Q1

REPORT INFORMATION
  Report Type: Spontaneous
  Country: BR (occurrence: BR)
  Receive Date: 20230127
  Receipt Date: 20230201
  Transmission Date: 20230418
  Serious: Yes (Other)
  Sender: FDA-Public Use
  Company Number: BR-002147023-NVSC2023BR016142

PATIENT
  Sex: Female

DRUGS (3)
  1. ENTRESTO [Suspect]
     Active Substance: SACUBITRIL\VALSARTAN
     Indication: Product used for unknown indication
     Dosage: 1 DOSAGE FORM, BID (50 MG)
     Route: 065
     Dates: start: 202201
  2. ENTRESTO [Suspect]
     Active Substance: SACUBITRIL\VALSARTAN
     Dosage: 1 DOSAGE FORM, BID (50 MG)
     Route: 065
  3. ENTRESTO [Suspect]
     Active Substance: SACUBITRIL\VALSARTAN
     Dosage: 1 DOSAGE FORM, QD (24/26 MG, 15 DAYS)
     Route: 065

REACTIONS (11)
  - Syncope [Unknown]
  - Vision blurred [Unknown]
  - Blood pressure decreased [Unknown]
  - Dizziness [Unknown]
  - Blood pressure fluctuation [Unknown]
  - Dysstasia [Unknown]
  - Gait disturbance [Unknown]
  - Fatigue [Unknown]
  - Cough [Unknown]
  - Prescribed underdose [Recovered/Resolved]
  - Product use issue [Unknown]

NARRATIVE: CASE EVENT DATE: 20220101
